FAERS Safety Report 5254300-6 (Version None)
Quarter: 2007Q1

REPORT INFORMATION
  Report Type: 
  Country: None (occurrence: None)
  Receive Date: 20070302
  Receipt Date: 20070221
  Transmission Date: 20070707
  Serious: Yes (Death)
  Sender: FDA-Public Use
  Company Number: DEWYE738421FEB07

PATIENT
  Sex: Male
  Weight: 95 kg

DRUGS (6)
  1. ENBREL [Suspect]
     Indication: RHEUMATOID ARTHRITIS
     Route: 058
     Dates: start: 20010701, end: 20070110
  2. VASCAL [Concomitant]
     Indication: HYPERTENSION
     Route: 048
     Dates: start: 20010701, end: 20070110
  3. CELEBREX [Concomitant]
     Indication: RHEUMATOID ARTHRITIS
     Route: 048
     Dates: start: 20041101, end: 20070110
  4. PROTAPHANE MC [Concomitant]
     Indication: DIABETES MELLITUS
     Dosage: 14 IU PER DAY
     Route: 058
     Dates: start: 20041101, end: 20070110
  5. QUENSYL [Concomitant]
     Indication: RHEUMATOID ARTHRITIS
     Route: 048
     Dates: start: 19970701, end: 20070110
  6. DECORTIN-H [Concomitant]
     Indication: RHEUMATOID ARTHRITIS
     Route: 048
     Dates: start: 19970101, end: 20070110

REACTIONS (1)
  - HEPATIC NEOPLASM MALIGNANT [None]
